FAERS Safety Report 8829419 (Version 2)
Quarter: 2012Q4

REPORT INFORMATION
  Report Type: Report from Study
  Country: JP (occurrence: JP)
  Receive Date: 20121008
  Receipt Date: 20121221
  Transmission Date: 20130627
  Serious: Yes (Hospitalization)
  Sender: FDA-Public Use
  Company Number: JP-VERTEX PHARMACEUTICAL INC.-2012-022323

PATIENT
  Age: 64 Year
  Sex: Male

DRUGS (10)
  1. VX-950 (TELAPREVIR) [Suspect]
     Indication: CHRONIC HEPATITIS C
     Dosage: 1500 mg, qd
     Route: 048
     Dates: start: 20120409, end: 20120701
  2. REBETOL [Suspect]
     Indication: CHRONIC HEPATITIS C
     Dosage: 400 mg, qd
     Route: 048
     Dates: start: 20120409, end: 20120430
  3. REBETOL [Suspect]
     Dosage: 200 mg, qd
     Route: 048
     Dates: start: 20120501, end: 20120716
  4. REBETOL [Suspect]
     Dosage: 300 mg, qd
     Route: 048
     Dates: start: 20120717, end: 20120722
  5. REBETOL [Suspect]
     Dosage: 400 mg, qd
     Route: 048
     Dates: start: 20120723, end: 20120728
  6. PEGINTERFERON ALFA-2B [Concomitant]
     Dosage: 1.5 ?g/kg, UNK
     Route: 058
     Dates: start: 20120409, end: 20120809
  7. URSO                               /00465701/ [Concomitant]
     Dosage: 900 mg, UNK
     Route: 048
  8. CAMOSTON [Concomitant]
     Dosage: 600 mg, UNK
     Route: 048
  9. ANOPROLIN [Concomitant]
     Dosage: 100 mg, UNK
     Route: 048
     Dates: start: 20120409, end: 20120821
  10. TALION                             /01587402/ [Concomitant]
     Dosage: 20 mg, qd
     Route: 048
     Dates: start: 20120409, end: 20120923

REACTIONS (1)
  - Pancreatitis acute [Recovered/Resolved]
